FAERS Safety Report 4752180-6 (Version None)
Quarter: 2005Q3

REPORT INFORMATION
  Report Type: 
  Country: None (occurrence: None)
  Receive Date: 20050824
  Receipt Date: 20050218
  Transmission Date: 20060218
  Serious: Yes (Other)
  Sender: FDA-Public Use
  Company Number: SAGL-ZLB/05/04/DEN

PATIENT
  Age: 62 Year
  Sex: Female
  Weight: 70 kg

DRUGS (7)
  1. SANDOGLOBULIN [Suspect]
     Indication: ASTHMA
     Dosage: 60 G, MONTHLY, I.V.
     Route: 042
     Dates: start: 20041012, end: 20041208
  2. THEO-DUR [Concomitant]
  3. SEREVENT (SALMETEREOL XINAFOATE0 [Concomitant]
  4. FLIXOTIDE (FLUTCASONE PROPIONATE) [Concomitant]
  5. CETERIZIN (CETRIZINE0 [Concomitant]
  6. BERODUAL (DUOVENT0 [Concomitant]
  7. PREDNISONE [Concomitant]

REACTIONS (10)
  - ASTHMA [None]
  - CONDITION AGGRAVATED [None]
  - COUGH [None]
  - DISCOMFORT [None]
  - FLUSHING [None]
  - HEADACHE [None]
  - HYPERTENSION [None]
  - MALAISE [None]
  - RASH MACULO-PAPULAR [None]
  - SENSE OF OPPRESSION [None]
